FAERS Safety Report 10594618 (Version 1)
Quarter: 2014Q4

REPORT INFORMATION
  Report Type: Spontaneous
  Country: US (occurrence: US)
  Receive Date: 20141120
  Receipt Date: 20141120
  Transmission Date: 20150529
  Serious: No
  Sender: FDA-Public Use
  Company Number: US-TEVA-498231USA

PATIENT

DRUGS (1)
  1. BUDESONIDE. [Suspect]
     Active Substance: BUDESONIDE
     Dosage: 0.5 MG/2 ML
     Route: 065

REACTIONS (3)
  - Blood pressure increased [Unknown]
  - Respiratory disorder [Unknown]
  - Fatigue [Unknown]
